FAERS Safety Report 19200673 (Version 1)
Quarter: 2021Q2

REPORT INFORMATION
  Report Type: Spontaneous
  Country: ZA (occurrence: ZA)
  Receive Date: 20210430
  Receipt Date: 20210430
  Transmission Date: 20210717
  Serious: Yes (Other)
  Sender: FDA-Public Use
  Company Number: ZA-PFIZER INC-2021454235

PATIENT
  Sex: Female

DRUGS (6)
  1. ARAVA [Suspect]
     Active Substance: LEFLUNOMIDE
  2. SALAZOPYRIN [Suspect]
     Active Substance: SULFASALAZINE
  3. PLASMOQUINE [Suspect]
     Active Substance: CHLOROQUINE SULFATE
  4. REVELLEX [Suspect]
     Active Substance: INFLIXIMAB
  5. PREDNISONE. [Suspect]
     Active Substance: PREDNISONE
  6. METHOTREXATE SODIUM. [Suspect]
     Active Substance: METHOTREXATE SODIUM

REACTIONS (1)
  - Rheumatoid arthritis [Unknown]
